FAERS Safety Report 5033982-8 (Version None)
Quarter: 2006Q2

REPORT INFORMATION
  Report Type: 
  Country: None (occurrence: None)
  Receive Date: 20060626
  Receipt Date: 20051219
  Transmission Date: 20061013
  Serious: Yes (Other)
  Sender: FDA-Public Use
  Company Number: 2005AP06479

PATIENT
  Age: 80 Year
  Sex: Male

DRUGS (9)
  1. ZOLADEX [Suspect]
     Indication: PROSTATE CANCER
     Route: 058
  2. FISH OIL [Suspect]
  3. TRADITIONAL CHINESE MEDICINE (TCM) CORDICEP [Suspect]
  4. TRADITIONAL CHINESE MEDICINE (TCM) SHOUWU [Suspect]
  5. WARFARIN SODIUM [Concomitant]
  6. ARCOXIA [Concomitant]
     Indication: BACK PAIN
  7. ZESTRIL [Concomitant]
  8. LASIX [Concomitant]
     Indication: DYSPNOEA
     Dosage: HIGH DOSE STATED
  9. ALLOPURINOL [Concomitant]

REACTIONS (3)
  - GASTROINTESTINAL HAEMORRHAGE [None]
  - HAEMOGLOBIN DECREASED [None]
  - PLATELET COUNT DECREASED [None]
